FAERS Safety Report 25503626 (Version 6)
Quarter: 2025Q3

REPORT INFORMATION
  Report Type: Spontaneous
  Country: TH (occurrence: TH)
  Receive Date: 20250702
  Receipt Date: 20250930
  Transmission Date: 20251021
  Serious: Yes (Hospitalization, Other)
  Sender: BRISTOL-MYERS SQUIBB COMPANY
  Company Number: TH-IPSEN Group, Research and Development-2025-14488

PATIENT
  Age: 54 Year
  Sex: Male

DRUGS (6)
  1. NIVOLUMAB [Suspect]
     Active Substance: NIVOLUMAB
     Indication: Renal cell carcinoma
     Dosage: EVERY 2 WEEKS
     Dates: start: 20250508, end: 20250825
  2. NIVOLUMAB [Suspect]
     Active Substance: NIVOLUMAB
     Dosage: 140 MG, Q2WEEKS
     Dates: start: 20250903
  3. CABOMETYX [Suspect]
     Active Substance: CABOZANTINIB S-MALATE
     Indication: Renal cell carcinoma
     Dosage: 40 MG,QD
     Dates: start: 20250509
  4. CABOMETYX [Suspect]
     Active Substance: CABOZANTINIB S-MALATE
     Dosage: THE PHYSICIAN HAD ADJUSTED THE DOSAGE TO 20 MG ONCE DAILY.
     Dates: start: 20250807
  5. CABOMETYX [Suspect]
     Active Substance: CABOZANTINIB S-MALATE
     Dosage: 20 MG ONCE DAILY ON THEIR OWN
     Dates: start: 20250830
  6. CABOMETYX [Suspect]
     Active Substance: CABOZANTINIB S-MALATE
     Dosage: CABOMETYX 40 MG FOR 5 DAYS
     Dates: start: 20250825, end: 20250829

REACTIONS (6)
  - Malnutrition [Unknown]
  - Tongue ulceration [Unknown]
  - Decreased appetite [Unknown]
  - Hyponatraemia [Unknown]
  - Palmar-plantar erythrodysaesthesia syndrome [Unknown]
  - Gait disturbance [Unknown]

NARRATIVE: CASE EVENT DATE: 20250604
